FAERS Safety Report 11995405 (Version 4)
Quarter: 2016Q1

REPORT INFORMATION
  Report Type: Report from Study
  Country: FR (occurrence: FR)
  Receive Date: 20160203
  Receipt Date: 20160217
  Transmission Date: 20160526
  Serious: Yes (Other)
  Sender: FDA-Public Use
  Company Number: FR-GLAXOSMITHKLINE-FR2016GSK011483

PATIENT
  Age: 60 Year
  Sex: Male

DRUGS (4)
  1. EZETIMIBE. [Suspect]
     Active Substance: EZETIMIBE
     Indication: PRODUCT USED FOR UNKNOWN INDICATION
  2. LANSOPRAZOLE. [Suspect]
     Active Substance: LANSOPRAZOLE
     Indication: PRODUCT USED FOR UNKNOWN INDICATION
     Dosage: UNK
  3. RANITIDINE HYDROCHLORIDE. [Suspect]
     Active Substance: RANITIDINE HYDROCHLORIDE
     Indication: PRODUCT USED FOR UNKNOWN INDICATION
  4. LITERATURE - PHARMA [Suspect]
     Active Substance: INVESTIGATIONAL PRODUCT

REACTIONS (6)
  - Skin exfoliation [Unknown]
  - Lymphocytic infiltration [Unknown]
  - Blood disorder [Unknown]
  - Epidermal necrosis [Unknown]
  - Cutaneous lupus erythematosus [Unknown]
  - Skin erosion [Unknown]
